FAERS Safety Report 9454351 (Version 1)
Quarter: 2013Q3

REPORT INFORMATION
  Report Type: Spontaneous
  Country: US (occurrence: US)
  Receive Date: 20130812
  Receipt Date: 20130812
  Transmission Date: 20140515
  Serious: No
  Sender: FDA-Public Use
  Company Number: US-009507513-1308USA004297

PATIENT
  Age: 80 Year
  Sex: Female

DRUGS (3)
  1. PROVENTIL [Suspect]
     Indication: BRONCHOSPASM
     Dosage: 90 MICROGRAM, Q4H-Q6H AS NEEDED
     Route: 002
     Dates: start: 20130716
  2. PROVENTIL [Suspect]
     Indication: BRONCHITIS
  3. QVAR [Concomitant]

REACTIONS (3)
  - Cough [Recovering/Resolving]
  - Nasal congestion [Recovering/Resolving]
  - Product quality issue [Unknown]
